FAERS Safety Report 21641292 (Version 1)
Quarter: 2022Q4

REPORT INFORMATION
  Report Type: Spontaneous
  Country: CN (occurrence: CN)
  Receive Date: 20221125
  Receipt Date: 20221125
  Transmission Date: 20230113
  Serious: Yes (Death, Other)
  Sender: FDA-Public Use
  Company Number: CN-SA-SAC20221122001300

PATIENT
  Sex: Female

DRUGS (1)
  1. PRALUENT [Suspect]
     Active Substance: ALIROCUMAB
     Indication: Lipids decreased
     Dosage: 75 MG, QOW
     Route: 058
     Dates: start: 20221001

REACTIONS (3)
  - Angina unstable [Fatal]
  - Effusion [Fatal]
  - Mitral valve incompetence [Fatal]

NARRATIVE: CASE EVENT DATE: 20221001
